FAERS Safety Report 8565765-6 (Version None)
Quarter: 2012Q3

REPORT INFORMATION
  Report Type: 
  Country: None (occurrence: None)
  Receive Date: 20120803
  Receipt Date: 20111021
  Transmission Date: 20120928
  Serious: No
  Sender: FDA-Public Use
  Company Number: US-ABBOTT-11P-163-0858172-00

PATIENT
  Sex: Female
  Weight: 90.8 kg

DRUGS (14)
  1. CLOZAPINE [Concomitant]
     Indication: PRODUCT USED FOR UNKNOWN INDICATION
  2. AMLODIPINE [Concomitant]
     Indication: CARDIAC DISORDER
  3. NIASPAN [Suspect]
     Indication: HIGH DENSITY LIPOPROTEIN DECREASED
     Dosage: AT BEDTIME
     Dates: start: 20110924, end: 20110927
  4. NAPROXEN [Concomitant]
     Indication: INFLAMMATION
  5. GABAPENTIN [Concomitant]
     Indication: PRODUCT USED FOR UNKNOWN INDICATION
  6. PREMARIN [Concomitant]
     Indication: PRODUCT USED FOR UNKNOWN INDICATION
  7. SEIZURE MEDICATION [Concomitant]
     Indication: PRODUCT USED FOR UNKNOWN INDICATION
  8. FENOFIBRATE [Concomitant]
     Indication: BLOOD CHOLESTEROL
  9. LANTUS [Concomitant]
     Indication: DIABETES MELLITUS
  10. CHANTIX [Concomitant]
     Indication: EX-TOBACCO USER
  11. HUMULIN R [Concomitant]
     Indication: DIABETES MELLITUS
  12. NORCO [Concomitant]
     Indication: PRODUCT USED FOR UNKNOWN INDICATION
  13. NITROGLYCERIN [Concomitant]
     Indication: PRODUCT USED FOR UNKNOWN INDICATION
  14. UNKNOWN MEDICATIONS [Concomitant]
     Indication: PRODUCT USED FOR UNKNOWN INDICATION

REACTIONS (4)
  - FLUSHING [None]
  - BURNING SENSATION [None]
  - PARAESTHESIA [None]
  - ERYTHEMA [None]
